FAERS Safety Report 5697818-4 (Version None)
Quarter: 2008Q2

REPORT INFORMATION
  Report Type: 
  Country: None (occurrence: None)
  Receive Date: 20080408
  Receipt Date: 20080403
  Transmission Date: 20081010
  Serious: Yes (Other)
  Sender: FDA-Public Use
  Company Number: FR-BRISTOL-MYERS SQUIBB COMPANY-14137632

PATIENT

DRUGS (1)
  1. MODECATE [Suspect]

REACTIONS (1)
  - NECROTISING COLITIS [None]
